FAERS Safety Report 21440652 (Version 2)
Quarter: 2024Q3

REPORT INFORMATION
  Report Type: Report from Study
  Country: JP (occurrence: None)
  Receive Date: 20221011
  Receipt Date: 20240725
  Transmission Date: 20241016
  Serious: Yes (Other)
  Sender: ASTRAZENECA
  Company Number: 2022A340991

PATIENT
  Age: 88 Year
  Sex: Male
  Weight: 61 kg

DRUGS (8)
  1. ONDEXXYA [Suspect]
     Active Substance: ANDEXANET ALFA
     Indication: Factor Xa activity abnormal
     Dosage: 400 MG + 480 MG (880 MG)
     Route: 042
     Dates: start: 20220616, end: 20220616
  2. NEXIUM GRANULES FOR SUSPENSION 10MG [Concomitant]
     Indication: Prophylaxis
     Route: 050
     Dates: start: 20220619
  3. APIXABAN [Concomitant]
     Active Substance: APIXABAN
     Route: 048
  4. AMLODIPINE [Concomitant]
     Active Substance: AMLODIPINE BESYLATE
     Indication: Hypertension
     Route: 050
     Dates: start: 20220618
  5. LEVETIRACETAM [Concomitant]
     Active Substance: LEVETIRACETAM
     Indication: Prophylaxis
     Route: 050
     Dates: start: 20220619
  6. ELIQUIS [Concomitant]
     Active Substance: APIXABAN
     Route: 050
     Dates: start: 20220621
  7. CARBOCYSTEINE [Concomitant]
     Active Substance: CARBOCYSTEINE
     Indication: Prophylaxis
     Route: 050
     Dates: start: 20220624
  8. LANSOPRAZOLE [Concomitant]
     Active Substance: LANSOPRAZOLE
     Indication: Prophylaxis
     Route: 065
     Dates: start: 20220616, end: 20220618

REACTIONS (1)
  - Cerebral infarction [Unknown]

NARRATIVE: CASE EVENT DATE: 20220617
